FAERS Safety Report 14259553 (Version 1)
Quarter: 2017Q4

REPORT INFORMATION
  Report Type: Spontaneous
  Country: US (occurrence: US)
  Receive Date: 20171207
  Receipt Date: 20171207
  Transmission Date: 20180321
  Serious: Yes (Death, Hospitalization)
  Sender: FDA-Public Use
  Company Number: US-GLENMARK PHARMACEUTICALS-2017GMK029914

PATIENT
  Age: 65 Year
  Sex: Female

DRUGS (2)
  1. MICAFUNGIN [Suspect]
     Active Substance: MICAFUNGIN
     Indication: BRONCHOPULMONARY ASPERGILLOSIS
     Dosage: UNK
     Route: 065
  2. VORICONAZOLE. [Suspect]
     Active Substance: VORICONAZOLE
     Indication: BRONCHOPULMONARY ASPERGILLOSIS
     Dosage: UNK
     Route: 065

REACTIONS (3)
  - Bronchopulmonary aspergillosis [Fatal]
  - Drug ineffective [Fatal]
  - Condition aggravated [Fatal]
